FAERS Safety Report 8267025-X (Version None)
Quarter: 2012Q2

REPORT INFORMATION
  Report Type: 
  Country: None (occurrence: None)
  Receive Date: 20120409
  Receipt Date: 20120329
  Transmission Date: 20120825
  Serious: No
  Sender: FDA-Public Use
  Company Number: US-PFIZER INC-2012081321

PATIENT
  Sex: Female

DRUGS (3)
  1. CALAN [Suspect]
     Dosage: UNK
  2. CALAN [Suspect]
     Dosage: UNK
  3. VERAPAMIL HCL [Suspect]
     Indication: MIGRAINE
     Dosage: UNK

REACTIONS (3)
  - NAUSEA [None]
  - HEADACHE [None]
  - DYSPEPSIA [None]
